FAERS Safety Report 16055816 (Version 1)
Quarter: 2019Q1

REPORT INFORMATION
  Report Type: Spontaneous
  Country: US (occurrence: US)
  Receive Date: 20190311
  Receipt Date: 20190311
  Transmission Date: 20190418
  Serious: No
  Sender: FDA-Public Use
  Company Number: US-009507513-1902USA011650

PATIENT
  Sex: Male

DRUGS (3)
  1. BRIDION [Suspect]
     Active Substance: SUGAMMADEX
     Indication: NEUROMUSCULAR BLOCKADE REVERSAL
     Dosage: 4 MILLIGRAM/KILOGRAM,UNKNOWN
     Route: 042
  2. BRIDION [Suspect]
     Active Substance: SUGAMMADEX
     Dosage: 2 MILLIGRAM/KILOGRAM,UNKNOWN
     Route: 042
  3. ZEMURON [Suspect]
     Active Substance: ROCURONIUM BROMIDE

REACTIONS (2)
  - Delayed recovery from anaesthesia [Recovered/Resolved]
  - Drug ineffective [Recovered/Resolved]
